FAERS Safety Report 6750095-5 (Version None)
Quarter: 2010Q2

REPORT INFORMATION
  Report Type: 
  Country: None (occurrence: None)
  Receive Date: 20100601
  Receipt Date: 20100520
  Transmission Date: 20101027
  Serious: Yes (Other)
  Sender: FDA-Public Use
  Company Number: PHHY2010US33276

PATIENT
  Sex: Female

DRUGS (5)
  1. RECLAST [Suspect]
     Dosage: UNK
     Dates: start: 20100402
  2. LAMICTAL [Suspect]
     Dosage: UNK
  3. SEROQUEL XR [Concomitant]
     Dosage: UNK
  4. VALTREX [Concomitant]
     Dosage: UNK
  5. ALLEGRA [Concomitant]
     Dosage: UNK

REACTIONS (4)
  - JOINT STIFFNESS [None]
  - ORAL FUNGAL INFECTION [None]
  - SWOLLEN TONGUE [None]
  - TONGUE DISORDER [None]
